FAERS Safety Report 11361658 (Version 2)
Quarter: 2015Q4

REPORT INFORMATION
  Report Type: Report from Study
  Country: US (occurrence: US)
  Receive Date: 20150810
  Receipt Date: 20151001
  Transmission Date: 20160304
  Serious: Yes (Other)
  Sender: FDA-Public Use
  Company Number: US-AMGEN-USASP2015079910

PATIENT
  Age: 60 Year
  Sex: Female

DRUGS (1)
  1. ENBREL [Suspect]
     Active Substance: ETANERCEPT
     Indication: PRODUCT USED FOR UNKNOWN INDICATION
     Dosage: UNK
     Route: 065

REACTIONS (10)
  - Condition aggravated [Unknown]
  - Stomatitis [Unknown]
  - Malaise [Unknown]
  - Tongue discolouration [Unknown]
  - Chills [Unknown]
  - Mouth ulceration [Unknown]
  - Systemic lupus erythematosus [Unknown]
  - Swollen tongue [Unknown]
  - Pyrexia [Unknown]
  - Oral papule [Unknown]

NARRATIVE: CASE EVENT DATE: 201507
